FAERS Safety Report 22203906 (Version 1)
Quarter: 2023Q2

REPORT INFORMATION
  Report Type: Spontaneous
  Country: US (occurrence: US)
  Receive Date: 20230412
  Receipt Date: 20230412
  Transmission Date: 20230722
  Serious: No
  Sender: FDA-Public Use
  Company Number: US-JNJFOC-20190726536

PATIENT
  Sex: Male
  Weight: 61.290 kg

DRUGS (1)
  1. IMODIUM [Suspect]
     Active Substance: LOPERAMIDE HYDROCHLORIDE
     Indication: Diarrhoea
     Dosage: 4 PILLS DAILY
     Route: 048
     Dates: end: 20190717

REACTIONS (2)
  - Incorrect dose administered [Unknown]
  - Off label use [Unknown]
